FAERS Safety Report 20856400 (Version 1)
Quarter: 2022Q2

REPORT INFORMATION
  Report Type: Spontaneous
  Country: US (occurrence: US)
  Receive Date: 20220520
  Receipt Date: 20220520
  Transmission Date: 20220720
  Serious: No
  Sender: FDA-Public Use
  Company Number: US-SANOFI-01096242

PATIENT
  Sex: Male

DRUGS (1)
  1. LOVENOX [Suspect]
     Active Substance: ENOXAPARIN SODIUM

REACTIONS (1)
  - Off label use [Unknown]
